FAERS Safety Report 13187059 (Version 1)
Quarter: 2017Q1

REPORT INFORMATION
  Report Type: Spontaneous
  Country: CA (occurrence: CA)
  Receive Date: 20170206
  Receipt Date: 20170206
  Transmission Date: 20170428
  Serious: Yes (Life-Threatening, Hospitalization)
  Sender: FDA-Public Use
  Company Number: CA-TEVA-736069ACC

PATIENT
  Age: 79 Year
  Sex: Female
  Weight: 90.8 kg

DRUGS (3)
  1. LEVOFLOXACIN. [Suspect]
     Active Substance: LEVOFLOXACIN
     Dosage: 1 DOSAGE FORMS DAILY;
     Route: 048
  2. VENTOLIN [Concomitant]
     Active Substance: ALBUTEROL SULFATE
  3. SYNTHROID [Concomitant]
     Active Substance: LEVOTHYROXINE SODIUM

REACTIONS (10)
  - Muscular weakness [Unknown]
  - Swollen tongue [Unknown]
  - Syncope [Unknown]
  - Blood pressure increased [Unknown]
  - Dyspnoea [Unknown]
  - Dry mouth [Unknown]
  - Dry throat [Unknown]
  - Nausea [Unknown]
  - Pharyngeal oedema [Unknown]
  - Dizziness [Unknown]
